FAERS Safety Report 6579781-7 (Version None)
Quarter: 2010Q1

REPORT INFORMATION
  Report Type: 
  Country: None (occurrence: None)
  Receive Date: 20100212
  Receipt Date: 20100203
  Transmission Date: 20100710
  Serious: Yes (Death, Hospitalization)
  Sender: FDA-Public Use
  Company Number: GB-ROCHE-681177

PATIENT
  Sex: Female

DRUGS (1)
  1. HERCEPTIN [Suspect]
     Indication: BREAST CANCER
     Dosage: INFUSION
     Route: 042
     Dates: start: 20091123, end: 20100103

REACTIONS (2)
  - BREAST CANCER METASTATIC [None]
  - HEADACHE [None]
